FAERS Safety Report 10240886 (Version 1)
Quarter: 2014Q2

REPORT INFORMATION
  Report Type: Spontaneous
  Country: US (occurrence: US)
  Receive Date: 20140617
  Receipt Date: 20140617
  Transmission Date: 20141212
  Serious: No
  Sender: FDA-Public Use
  Company Number: US-009507513-1406USA007034

PATIENT
  Sex: Female

DRUGS (2)
  1. JANUMET XR [Suspect]
     Indication: DIABETES MELLITUS
     Dosage: 100/1000 MG ONCE DAILY
     Route: 048
  2. GLUCOPHAGE [Suspect]
     Dosage: UNK

REACTIONS (1)
  - Hypoglycaemia [Recovering/Resolving]
